FAERS Safety Report 24963081 (Version 2)
Quarter: 2025Q1

REPORT INFORMATION
  Report Type: Spontaneous
  Country: AU (occurrence: AU)
  Receive Date: 20250213
  Receipt Date: 20250227
  Transmission Date: 20250409
  Serious: Yes (Hospitalization, Other)
  Sender: TEVA
  Company Number: AU-TEVA-VS-3295522

PATIENT
  Sex: Female

DRUGS (5)
  1. FENTANYL [Suspect]
     Active Substance: FENTANYL
     Indication: Cancer pain
     Dosage: IMMEDIATE RELEASE, 8-12 DOSES
     Route: 048
  2. FENTANYL [Suspect]
     Active Substance: FENTANYL
     Indication: Cancer pain
     Route: 048
  3. TRAMADOL [Concomitant]
     Active Substance: TRAMADOL
     Indication: Cancer pain
     Dosage: MODIFIED RELEASE
     Route: 050
  4. MORPHINE [Suspect]
     Active Substance: MORPHINE
     Indication: Cancer pain
     Route: 050
  5. OXYCODONE [Suspect]
     Active Substance: OXYCODONE
     Indication: Cancer pain
     Dosage: MODIFIED RELEASE
     Route: 050

REACTIONS (4)
  - Rebound effect [Unknown]
  - Cancer pain [Recovering/Resolving]
  - Cognitive disorder [Unknown]
  - Nervous system disorder [Unknown]
